FAERS Safety Report 9724916 (Version 1)
Quarter: 2013Q4

REPORT INFORMATION
  Report Type: Spontaneous
  Country: US (occurrence: US)
  Receive Date: 20131202
  Receipt Date: 20131202
  Transmission Date: 20140711
  Serious: No
  Sender: FDA-Public Use
  Company Number: US-ENDO PHARMACEUTICALS INC.-OXYC20130001

PATIENT
  Sex: Male

DRUGS (1)
  1. OXYCODONE HCL 5MG [Suspect]
     Indication: NECK PAIN
     Dosage: 5 MG
     Route: 048
     Dates: start: 2011, end: 201212

REACTIONS (4)
  - Depression [Not Recovered/Not Resolved]
  - Dry mouth [Not Recovered/Not Resolved]
  - Sinus headache [Not Recovered/Not Resolved]
  - Drug effect decreased [Recovered/Resolved]
